FAERS Safety Report 5027637-3 (Version None)
Quarter: 2006Q2

REPORT INFORMATION
  Report Type: 
  Country: None (occurrence: None)
  Receive Date: 20060428
  Receipt Date: 20060126
  Transmission Date: 20061013
  Serious: No
  Sender: FDA-Public Use
  Company Number: COT_0387_2006

PATIENT
  Sex: Male

DRUGS (1)
  1. VENTAVIS [Suspect]
     Dosage: DF IH

REACTIONS (1)
  - DYSPHONIA [None]
